FAERS Safety Report 5395291-7 (Version None)
Quarter: 2007Q3

REPORT INFORMATION
  Report Type: 
  Country: None (occurrence: None)
  Receive Date: 20070724
  Receipt Date: 20070716
  Transmission Date: 20080115
  Serious: Yes (Death)
  Sender: FDA-Public Use
  Company Number: US-BRACCO-BDI-009834

PATIENT
  Age: 75 Year
  Sex: Male
  Weight: 170 kg

DRUGS (2)
  1. ISOVUE-128 [Suspect]
     Route: 042
     Dates: start: 20070626, end: 20070626
  2. ISOVUE-128 [Suspect]
     Route: 042
     Dates: start: 20070626, end: 20070626

REACTIONS (5)
  - CYANOSIS [None]
  - DYSPNOEA [None]
  - SWELLING FACE [None]
  - SWOLLEN TONGUE [None]
  - THROAT TIGHTNESS [None]
